FAERS Safety Report 24443052 (Version 2)
Quarter: 2024Q4

REPORT INFORMATION
  Report Type: Report from Study
  Country: EG (occurrence: EG)
  Receive Date: 20241016
  Receipt Date: 20241017
  Transmission Date: 20250114
  Serious: No
  Sender: ROCHE
  Company Number: EG-ROCHE-3573312

PATIENT
  Age: 6 Year
  Sex: Male
  Weight: 21.0 kg

DRUGS (8)
  1. EMICIZUMAB [Suspect]
     Active Substance: EMICIZUMAB
     Indication: Factor VIII deficiency
     Route: 058
     Dates: start: 20231031
  2. EMICIZUMAB [Suspect]
     Active Substance: EMICIZUMAB
     Dosage: THE SUBSEQUENT DOSE WAS GIVEN ON : 07-NOV-2023, 31-OCT-2023, 02-NOV-2023, 25-NOV-2023, 18-NOV-2023,
     Route: 058
  3. ANTIHEMOPHILIC FACTOR, HUMAN RECOMBINANT [Suspect]
     Active Substance: ANTIHEMOPHILIC FACTOR, HUMAN RECOMBINANT
     Indication: Factor VIII deficiency
     Dosage: SUBSEQUENT DOSAGE WAS GIVEN ON : 13-NOV-2022, 1-NOV-2022, 13-NOV-2022, 27-NOV-2022, 04-JAN-2023, 10-
     Route: 042
  4. ANTIHEMOPHILIC FACTOR, HUMAN RECOMBINANT [Suspect]
     Active Substance: ANTIHEMOPHILIC FACTOR, HUMAN RECOMBINANT
     Route: 042
  5. CEFTRIAXONE [Concomitant]
     Active Substance: CEFTRIAXONE
     Route: 030
     Dates: start: 20240506, end: 20240512
  6. METRONIDAZOLE [Concomitant]
     Active Substance: METRONIDAZOLE
     Route: 048
     Dates: start: 20240506, end: 20240512
  7. MAXILASE [Concomitant]
     Active Substance: PANCRELIPASE
     Route: 048
     Dates: start: 20240506, end: 20240512
  8. AMOXICILLIN [Concomitant]
     Active Substance: AMOXICILLIN
     Route: 048
     Dates: end: 20240516

REACTIONS (1)
  - Tooth abscess [Recovered/Resolved]

NARRATIVE: CASE EVENT DATE: 20240506
